FAERS Safety Report 9418592 (Version 5)
Quarter: 2014Q2

REPORT INFORMATION
  Report Type: Spontaneous
  Country: CA (occurrence: CA)
  Receive Date: 20130725
  Receipt Date: 20140528
  Transmission Date: 20141212
  Serious: Yes (Hospitalization, Other)
  Sender: FDA-Public Use
  Company Number: CA-ROCHE-1253020

PATIENT
  Age: 38 Year
  Sex: Male

DRUGS (11)
  1. XOLAIR [Suspect]
     Indication: CHRONIC SPONTANEOUS URTICARIA
     Route: 058
     Dates: start: 20130524
  2. XOLAIR [Suspect]
     Indication: ANGIOEDEMA
     Route: 058
     Dates: start: 20130719, end: 20130802
  3. XOLAIR [Suspect]
     Route: 058
     Dates: start: 20130802
  4. NORVASC [Concomitant]
  5. MICARDIS [Concomitant]
  6. SYNTHROID [Concomitant]
  7. CETRIZINE [Concomitant]
  8. AERIUS [Concomitant]
  9. RANITIDIN [Concomitant]
  10. PREDNISONE [Concomitant]
  11. HYDROCHLOROTHIAZIDE [Concomitant]

REACTIONS (4)
  - Anaphylactic shock [Recovered/Resolved]
  - Angioedema [Unknown]
  - Neoplasm malignant [Unknown]
  - Off label use [Unknown]
